FAERS Safety Report 10684240 (Version 8)
Quarter: 2019Q3

REPORT INFORMATION
  Report Type: Spontaneous
  Country: GB (occurrence: GB)
  Receive Date: 20141231
  Receipt Date: 20190909
  Transmission Date: 20191004
  Serious: Yes (Life-Threatening, Hospitalization, Other)
  Sender: FDA-Public Use
  Company Number: GB-JNJFOC-20141213648

PATIENT
  Age: 29 Year
  Sex: Female

DRUGS (6)
  1. ENOXAPARIN [Concomitant]
     Active Substance: ENOXAPARIN
     Indication: PRODUCT USED FOR UNKNOWN INDICATION
     Route: 065
  2. PARACETAMOL [Suspect]
     Active Substance: ACETAMINOPHEN
     Indication: PELVIC PAIN
     Dosage: UPTO FOUR DOSES PER DAY
     Route: 048
  3. COCODAMOL [Suspect]
     Active Substance: ACETAMINOPHEN\CODEINE PHOSPHATE
     Indication: PELVIC PAIN
     Dosage: GESTATION PERIOD: 2 (TRIMESTER)
     Route: 048
  4. METRONIDAZOLE. [Concomitant]
     Active Substance: METRONIDAZOLE
     Indication: PYELONEPHRITIS
     Route: 065
  5. FLUOXETINE [Concomitant]
     Active Substance: FLUOXETINE HYDROCHLORIDE
     Indication: PRODUCT USED FOR UNKNOWN INDICATION
     Route: 065
  6. CEFRADINE [Concomitant]
     Active Substance: CEPHRADINE
     Indication: PRODUCT USED FOR UNKNOWN INDICATION
     Route: 065

REACTIONS (15)
  - Consciousness fluctuating [Unknown]
  - Caesarean section [Unknown]
  - Live birth [Unknown]
  - Asthenia [Unknown]
  - Hepatotoxicity [Recovered/Resolved with Sequelae]
  - Premature labour [Unknown]
  - Accidental overdose [Recovered/Resolved]
  - Malaise [Recovered/Resolved]
  - Maternal exposure during pregnancy [Recovered/Resolved]
  - Asthenopia [Unknown]
  - Depressed level of consciousness [Unknown]
  - Feeling guilty [Unknown]
  - Exposure during pregnancy [Recovered/Resolved]
  - Hepatic failure [Recovered/Resolved]
  - Fear [Unknown]
